FAERS Safety Report 4588313-4 (Version None)
Quarter: 2005Q1

REPORT INFORMATION
  Report Type: 
  Country: None (occurrence: None)
  Receive Date: 20050216
  Receipt Date: 20050128
  Transmission Date: 20050727
  Serious: Yes (Death, Hospitalization)
  Sender: FDA-Public Use
  Company Number: EWC030534844

PATIENT
  Age: 54 Year
  Sex: Male

DRUGS (5)
  1. GEMCITABINE HYDROCHLORIDE-IV (GEMCITABINE) [Suspect]
     Indication: LUNG ADENOCARCINOMA STAGE III
     Dosage: 1000 MG/M2/1 OTHER
     Route: 050
     Dates: start: 20020501, end: 20021101
  2. CISPLATIN [Concomitant]
  3. RADIOTHERAPY [Concomitant]
  4. ALBUTEROL [Concomitant]
  5. FLUTICASONE PROPIONATE [Concomitant]

REACTIONS (7)
  - CHEST PAIN [None]
  - GASTRIC HAEMORRHAGE [None]
  - HAEMATEMESIS [None]
  - LYMPHADENOPATHY [None]
  - NECROSIS [None]
  - THERAPY NON-RESPONDER [None]
  - TRACHEAL DISORDER [None]
